FAERS Safety Report 6678083-8 (Version None)
Quarter: 2010Q2

REPORT INFORMATION
  Report Type: 
  Country: None (occurrence: None)
  Receive Date: 20100409
  Receipt Date: 20100409
  Transmission Date: 20101027
  Serious: Yes (Other)
  Sender: FDA-Public Use
  Company Number: None

PATIENT
  Age: 54 Year
  Sex: Female

DRUGS (2)
  1. ZITHROMAX [Suspect]
     Indication: CHRONIC OBSTRUCTIVE PULMONARY DISEASE
     Dosage: IV
     Route: 042
  2. BENADRYL [Suspect]
     Dosage: IV
     Route: 042

REACTIONS (2)
  - BURNING SENSATION [None]
  - PRURITUS [None]
